FAERS Safety Report 12375217 (Version 1)
Quarter: 2016Q2

REPORT INFORMATION
  Report Type: Spontaneous
  Country: US (occurrence: None)
  Receive Date: 20160516
  Receipt Date: 20160516
  Transmission Date: 20160815
  Serious: Yes (Other)
  Sender: FDA-Public Use
  Company Number: None

PATIENT
  Age: 62 Year
  Sex: Female
  Weight: 56.7 kg

DRUGS (4)
  1. FISH OIL [Concomitant]
     Active Substance: FISH OIL
  2. CIPROFLOXACIN 500MG TABLETS, 500MG ACTAVIS [Suspect]
     Active Substance: CIPROFLOXACIN
     Indication: URINARY TRACT INFECTION
     Route: 048
     Dates: start: 20160504, end: 20160509
  3. MULTIVITAMINS [Concomitant]
     Active Substance: VITAMINS
  4. ASA [Concomitant]
     Active Substance: ASPIRIN

REACTIONS (8)
  - Dizziness [None]
  - Vomiting [None]
  - Haematochezia [None]
  - Abdominal pain [None]
  - Swelling [None]
  - Mucous stools [None]
  - Malaise [None]
  - Diarrhoea [None]

NARRATIVE: CASE EVENT DATE: 20160512
